FAERS Safety Report 6753702-6 (Version None)
Quarter: 2010Q2

REPORT INFORMATION
  Report Type: 
  Country: None (occurrence: None)
  Receive Date: 20100603
  Receipt Date: 20100525
  Transmission Date: 20101027
  Serious: Yes (Other)
  Sender: FDA-Public Use
  Company Number: DE-ROCHE-705848

PATIENT
  Sex: Female

DRUGS (4)
  1. MYCOPHENOLATE MOFETIL [Suspect]
     Indication: TRANSPLANT
     Dosage: DATE OF LAST DOSE PRIOR TO SAE: 13 MAY 2010, FREQUENCY REPORTED AS: 1-0-1.
     Route: 048
     Dates: start: 20100430
  2. BASILIXIMAB [Suspect]
     Indication: TRANSPLANT
     Dosage: DOSAGE FORM: LIQUID, DATE OF LAST DOSE PRIOR TO SAE: 04 MAY 2010, FREQUENCY REPORTED AS: 1-0-0
     Route: 042
     Dates: start: 20100430
  3. TACROLIMUS [Suspect]
     Indication: TRANSPLANT
     Dosage: DATE OF LAST DOSE PRIOR TO SAE: 13 MAY 2010, FREQUENCY REPORTED AS: 1-0-0
     Route: 048
     Dates: start: 20100430
  4. PREDNISOLONE [Suspect]
     Indication: TRANSPLANT
     Dosage: LAST DOSE PRIOR TO SAE: 07 MAY 2010. FREQUENCY REPORTED AS 1-0-0
     Route: 048
     Dates: start: 20100430

REACTIONS (1)
  - TRANSPLANT REJECTION [None]
